FAERS Safety Report 9748566 (Version 1)
Quarter: 2013Q4

REPORT INFORMATION
  Report Type: Spontaneous
  Country: US (occurrence: None)
  Receive Date: 20131209
  Receipt Date: 20131209
  Transmission Date: 20140711
  Serious: Yes (Other)
  Sender: FDA-Public Use
  Company Number: None

PATIENT
  Sex: Male

DRUGS (2)
  1. CELLCEPT [Suspect]
     Route: 048
     Dates: start: 20121205
  2. PROGRAF [Concomitant]

REACTIONS (1)
  - Dementia Alzheimer^s type [None]
